FAERS Safety Report 12898823 (Version 1)
Quarter: 2016Q4

REPORT INFORMATION
  Report Type: Spontaneous
  Country: US (occurrence: US)
  Receive Date: 20161101
  Receipt Date: 20161101
  Transmission Date: 20170207
  Serious: Yes (Death, Hospitalization)
  Sender: FDA-Public Use
  Company Number: US-STRIDES ARCOLAB LIMITED-2016SP016482

PATIENT

DRUGS (4)
  1. IBUPROFEN. [Suspect]
     Active Substance: IBUPROFEN
     Indication: CONTUSION
     Dosage: 2400 MG, DAILY
  2. VALDECOXIB [Suspect]
     Active Substance: VALDECOXIB
     Indication: CONTUSION
  3. VALDECOXIB [Suspect]
     Active Substance: VALDECOXIB
     Indication: PAIN
     Dosage: 10 MG, QD
  4. FLEXERIL [Concomitant]
     Active Substance: CYCLOBENZAPRINE HYDROCHLORIDE
     Indication: ARTHRALGIA
     Dosage: UNK

REACTIONS (10)
  - Renal failure [Fatal]
  - Diabetes mellitus [Unknown]
  - Respiratory distress [Unknown]
  - Hypertension [Unknown]
  - Bronchospasm [Unknown]
  - Kidney small [Unknown]
  - End stage renal disease [Unknown]
  - Coma [Unknown]
  - Endocrine disorder [Unknown]
  - Cerebral haemorrhage [Unknown]
